FAERS Safety Report 7207502-3 (Version None)
Quarter: 2010Q4

REPORT INFORMATION
  Report Type: 
  Country: None (occurrence: None)
  Receive Date: 20101221
  Receipt Date: 20101205
  Transmission Date: 20110411
  Serious: Yes (Other)
  Sender: FDA-Public Use
  Company Number: 2010AP002388

PATIENT

DRUGS (1)
  1. TOPIRAMATE [Suspect]
     Dosage: TRPL
     Route: 064

REACTIONS (2)
  - FOETAL MALFORMATION [None]
  - MATERNAL DRUGS AFFECTING FOETUS [None]
